FAERS Safety Report 7491167-X (Version None)
Quarter: 2011Q2

REPORT INFORMATION
  Report Type: 
  Country: None (occurrence: None)
  Receive Date: 20110519
  Receipt Date: 20110516
  Transmission Date: 20111010
  Serious: Yes (Other)
  Sender: FDA-Public Use
  Company Number: US-PFIZER INC-2011104933

PATIENT
  Sex: Male
  Weight: 77.098 kg

DRUGS (3)
  1. OXYCODONE [Concomitant]
     Indication: PERIPHERAL NERVE INJURY
     Dosage: UNK
  2. GEODON [Suspect]
     Indication: BIPOLAR DISORDER
     Dosage: 40 MG, 2X/DAY
     Route: 048
     Dates: end: 20110101
  3. GEODON [Suspect]
     Indication: AFFECTIVE DISORDER
     Dosage: 80 MG, 2X/DAY
     Route: 048
     Dates: start: 20100520

REACTIONS (7)
  - CEREBRAL DISORDER [None]
  - WITHDRAWAL SYNDROME [None]
  - TREMOR [None]
  - MOTOR DYSFUNCTION [None]
  - CEREBROVASCULAR ACCIDENT [None]
  - DECREASED APPETITE [None]
  - ABNORMAL BEHAVIOUR [None]
